FAERS Safety Report 23198665 (Version 1)
Quarter: 2023Q4

REPORT INFORMATION
  Report Type: Report from Study
  Country: NL (occurrence: NL)
  Receive Date: 20231117
  Receipt Date: 20231117
  Transmission Date: 20240110
  Serious: Yes (Hospitalization, Other)
  Sender: FDA-Public Use
  Company Number: NL-VER-202300088

PATIENT
  Age: 64 Year
  Sex: Male

DRUGS (1)
  1. TRIPTORELIN PAMOATE [Suspect]
     Active Substance: TRIPTORELIN PAMOATE
     Indication: Prostate cancer
     Dosage: 1.00 X PER 6 MAANDEN (2 ML,6 M)
     Route: 030

REACTIONS (2)
  - Erysipelas [Recovered/Resolved]
  - Metastases to pelvis [Unknown]

NARRATIVE: CASE EVENT DATE: 20230903
